FAERS Safety Report 8149880-7 (Version None)
Quarter: 2012Q1

REPORT INFORMATION
  Report Type: 
  Country: None (occurrence: None)
  Receive Date: 20120218
  Receipt Date: 20111214
  Transmission Date: 20120608
  Serious: No
  Sender: FDA-Public Use
  Company Number: US-ALLERGAN-1116404US

PATIENT
  Sex: Female

DRUGS (2)
  1. JUVEDERM [Concomitant]
     Indication: SKIN WRINKLING
  2. BOTOX COSMETIC [Suspect]
     Indication: SKIN WRINKLING
     Route: 030

REACTIONS (1)
  - VISUAL ACUITY REDUCED [None]
